FAERS Safety Report 22346142 (Version 2)
Quarter: 2023Q2

REPORT INFORMATION
  Report Type: Spontaneous
  Country: JP (occurrence: JP)
  Receive Date: 20230519
  Receipt Date: 20230524
  Transmission Date: 20230722
  Serious: Yes (Other)
  Sender: FDA-Public Use
  Company Number: JP-PFIZER INC-PV202300088182

PATIENT
  Age: 73 Year
  Sex: Female

DRUGS (4)
  1. METHOTREXATE SODIUM [Suspect]
     Active Substance: METHOTREXATE SODIUM
     Indication: Follicular lymphoma
     Dosage: 1 DF, CYCLIC (3 CYCLES)
     Route: 037
  2. RITUXIMAB [Suspect]
     Active Substance: RITUXIMAB
     Indication: Follicular lymphoma
     Dosage: 1 DF, CYCLIC (3 CYCLES)
  3. PROCARBAZINE [Suspect]
     Active Substance: PROCARBAZINE
     Indication: Follicular lymphoma
     Dosage: 1 DF, CYCLIC (3 CYCLES)
  4. VINCRISTINE [Suspect]
     Active Substance: VINCRISTINE
     Indication: Follicular lymphoma
     Dosage: 1 DF, CYCLIC (3 CYCLES)

REACTIONS (2)
  - Seizure [Recovered/Resolved]
  - Off label use [Unknown]
